FAERS Safety Report 4681732-7 (Version None)
Quarter: 2005Q2

REPORT INFORMATION
  Report Type: 
  Country: None (occurrence: None)
  Receive Date: 20050603
  Receipt Date: 20050525
  Transmission Date: 20051028
  Serious: Yes (Other)
  Sender: FDA-Public Use
  Company Number: US-MERCK-0505USA03181

PATIENT
  Age: 48 Year
  Sex: Male
  Weight: 100 kg

DRUGS (2)
  1. VIOXX [Suspect]
     Indication: INTERVERTEBRAL DISC PROTRUSION
     Route: 048
  2. CORTISONE [Concomitant]
     Route: 065

REACTIONS (10)
  - ANGINA UNSTABLE [None]
  - BLOOD TRIGLYCERIDES INCREASED [None]
  - CORONARY ARTERY ATHEROSCLEROSIS [None]
  - CORONARY ARTERY DISEASE [None]
  - HYPERCHOLESTEROLAEMIA [None]
  - HYPERLIPIDAEMIA [None]
  - HYPERTENSION [None]
  - MYOCARDIAL ISCHAEMIA [None]
  - VENTRICULAR DYSKINESIA [None]
  - VENTRICULAR HYPOKINESIA [None]
